FAERS Safety Report 8498032-X (Version None)
Quarter: 2012Q3

REPORT INFORMATION
  Report Type: 
  Country: None (occurrence: None)
  Receive Date: 20120709
  Receipt Date: 20120618
  Transmission Date: 20120928
  Serious: No
  Sender: FDA-Public Use
  Company Number: US-AMGEN-USASP2012037854

PATIENT
  Age: 50 Year
  Sex: Female

DRUGS (3)
  1. ENBREL [Suspect]
     Indication: FIBROMYALGIA
  2. ENBREL [Suspect]
     Indication: OSTEOARTHRITIS
  3. ENBREL [Suspect]
     Indication: RHEUMATOID ARTHRITIS
     Dosage: 50 MG, QWK
     Dates: start: 20120530

REACTIONS (12)
  - ABDOMINAL PAIN [None]
  - HAND FRACTURE [None]
  - CONTUSION [None]
  - HEADACHE [None]
  - ARTHRALGIA [None]
  - INJECTION SITE SWELLING [None]
  - PAIN IN EXTREMITY [None]
  - NAUSEA [None]
  - MALAISE [None]
  - FALL [None]
  - INJECTION SITE WARMTH [None]
  - INJECTION SITE ERYTHEMA [None]
